FAERS Safety Report 5366586-8 (Version None)
Quarter: 2007Q2

REPORT INFORMATION
  Report Type: 
  Country: None (occurrence: None)
  Receive Date: 20070622
  Receipt Date: 20070613
  Transmission Date: 20071010
  Serious: Yes (Hospitalization, Disabling, Other)
  Sender: FDA-Public Use
  Company Number: JP-PFIZER INC-2007018873

PATIENT
  Sex: Female
  Weight: 46 kg

DRUGS (5)
  1. LIPITOR [Suspect]
     Dosage: DAILY DOSE:10MG
     Route: 048
     Dates: start: 20060907, end: 20070111
  2. RANITIDINE HYDROCHLORIDE [Suspect]
     Indication: DUODENAL ULCER
     Route: 048
     Dates: start: 20060726, end: 20070111
  3. PABRON [Suspect]
     Indication: NASOPHARYNGITIS
     Route: 048
     Dates: start: 20070110, end: 20070111
  4. INVESTIGATIONAL DRUG [Concomitant]
  5. AMARYL [Concomitant]
     Route: 048

REACTIONS (4)
  - BLOOD CREATINE PHOSPHOKINASE INCREASED [None]
  - BLOOD CREATINE PHOSPHOKINASE MB INCREASED [None]
  - BODY TEMPERATURE INCREASED [None]
  - NASOPHARYNGITIS [None]
